FAERS Safety Report 9692770 (Version 1)
Quarter: 2013Q4

REPORT INFORMATION
  Report Type: Spontaneous
  Country: US (occurrence: None)
  Receive Date: 20131115
  Receipt Date: 20131115
  Transmission Date: 20140711
  Serious: Yes (Other)
  Sender: FDA-Public Use
  Company Number: None

PATIENT
  Age: 35 Year
  Sex: Female
  Weight: 61.24 kg

DRUGS (1)
  1. MIRENA IUD [Suspect]

REACTIONS (11)
  - Headache [None]
  - Fatigue [None]
  - Dizziness [None]
  - Abdominal discomfort [None]
  - Feeling abnormal [None]
  - Vaginal haemorrhage [None]
  - Nausea [None]
  - Paraesthesia [None]
  - Feeling abnormal [None]
  - Memory impairment [None]
  - Menorrhagia [None]
